FAERS Safety Report 9032646 (Version 2)
Quarter: 2013Q2

REPORT INFORMATION
  Report Type: Spontaneous
  Country: ES (occurrence: ES)
  Receive Date: 20130125
  Receipt Date: 20130403
  Transmission Date: 20140414
  Serious: Yes (Hospitalization)
  Sender: FDA-Public Use
  Company Number: ES-009507513-1301ESP011242

PATIENT
  Age: 44 Year
  Sex: Male

DRUGS (2)
  1. REBETOL [Suspect]
     Dosage: UNK
     Route: 048
     Dates: start: 20110509
  2. PEGASYS [Suspect]
     Dosage: 180 MICROGRAM, QW
     Route: 058
     Dates: start: 20110509

REACTIONS (1)
  - Autoimmune haemolytic anaemia [Recovered/Resolved]
